FAERS Safety Report 7330006-4 (Version None)
Quarter: 2011Q1

REPORT INFORMATION
  Report Type: 
  Country: None (occurrence: None)
  Receive Date: 20110303
  Receipt Date: 20110224
  Transmission Date: 20110831
  Serious: Yes (Other)
  Sender: FDA-Public Use
  Company Number: FR-GILEAD-2010-0031763

PATIENT
  Age: 32 Year
  Sex: Female

DRUGS (7)
  1. TRUVADA [Suspect]
     Indication: HIV INFECTION
     Dates: start: 20070101, end: 20100127
  2. ASPEGIC 325 [Suspect]
     Dates: start: 20100319, end: 20100409
  3. KALETRA [Suspect]
     Indication: HIV INFECTION
     Dates: start: 20070101, end: 20100127
  4. LYRICA [Suspect]
     Indication: PAIN
     Dates: start: 20091214, end: 20100127
  5. COMBIVIR [Suspect]
     Indication: HIV INFECTION
     Dates: start: 20100127
  6. GUTRON [Suspect]
     Indication: ORTHOSTATIC HYPOTENSION
     Dates: start: 20091214, end: 20100127
  7. SPECIAFOLDINE [Concomitant]
     Dates: start: 20100127

REACTIONS (1)
  - ABORTION INDUCED [None]
